FAERS Safety Report 5322793-1 (Version None)
Quarter: 2007Q2

REPORT INFORMATION
  Report Type: 
  Country: None (occurrence: None)
  Receive Date: 20070511
  Receipt Date: 20070507
  Transmission Date: 20071010
  Serious: Yes (Hospitalization)
  Sender: FDA-Public Use
  Company Number: US-AMGEN-US191670

PATIENT
  Sex: Female

DRUGS (3)
  1. KINERET [Suspect]
     Indication: ARTHRITIS
     Route: 058
     Dates: start: 20020101
  2. METHOTREXATE [Concomitant]
     Dates: start: 19930101
  3. PREDNISONE TAB [Concomitant]
     Route: 065

REACTIONS (2)
  - KNEE ARTHROPLASTY [None]
  - SYNOVITIS [None]
